FAERS Safety Report 7475618-2 (Version None)
Quarter: 2011Q2

REPORT INFORMATION
  Report Type: 
  Country: None (occurrence: None)
  Receive Date: 20110512
  Receipt Date: 20110505
  Transmission Date: 20111010
  Serious: Yes (Hospitalization)
  Sender: FDA-Public Use
  Company Number: FR-PFIZER INC-2011096829

PATIENT
  Age: 66 Year

DRUGS (1)
  1. SOLU-MEDROL [Suspect]
     Indication: PREMEDICATION
     Dosage: 80 MG, SINGLE, 90 MINUTES
     Route: 042
     Dates: start: 20110408, end: 20110408

REACTIONS (1)
  - DERMATITIS ALLERGIC [None]
